FAERS Safety Report 5477706-9 (Version None)
Quarter: 2007Q4

REPORT INFORMATION
  Report Type: 
  Country: None (occurrence: None)
  Receive Date: 20071003
  Receipt Date: 20071003
  Transmission Date: 20080405
  Serious: Yes (Hospitalization)
  Sender: FDA-Public Use
  Company Number: None

PATIENT
  Age: 56 Year
  Sex: Female
  Weight: 80 kg

DRUGS (8)
  1. BEVACIZUMAB (GENENTECH) [Suspect]
     Indication: GLIOBLASTOMA MULTIFORME
     Dosage: 805MG IV EVERY 2 WEEKS
     Dates: start: 20070817
  2. BEVACIZUMAB (GENENTECH) [Suspect]
     Indication: GLIOBLASTOMA MULTIFORME
     Dosage: 805MG IV EVERY 2 WEEKS
     Dates: start: 20070831
  3. TEMOZOLOMIDE [Suspect]
     Indication: GLIOBLASTOMA MULTIFORME
     Dosage: 90 MG PO DAILY
     Route: 048
     Dates: start: 20070817, end: 20070910
  4. PROTONIX [Concomitant]
  5. SYNTHROID [Concomitant]
  6. ASPIRIN [Concomitant]
  7. KEPPRA [Concomitant]
  8. DECADRON [Concomitant]

REACTIONS (8)
  - CONVULSION [None]
  - DISEASE PROGRESSION [None]
  - FALL [None]
  - HEMIPARESIS [None]
  - HYPOTENSION [None]
  - LUNG NEOPLASM [None]
  - PNEUMONIA [None]
  - TACHYCARDIA [None]
